FAERS Safety Report 9576943 (Version 1)
Quarter: 2013Q4

REPORT INFORMATION
  Report Type: Spontaneous
  Country: US (occurrence: US)
  Receive Date: 20131001
  Receipt Date: 20131001
  Transmission Date: 20140711
  Serious: No
  Sender: FDA-Public Use
  Company Number: US-AMGEN-USASP2013005478

PATIENT
  Sex: Female
  Weight: 60.77 kg

DRUGS (11)
  1. ENBREL [Suspect]
     Indication: PSORIASIS
     Dosage: 50 MG, 2 TIMES/WK
     Route: 058
  2. CENTRUM SILVER                     /02363801/ [Concomitant]
     Dosage: UNK
  3. LASIX                              /00032601/ [Concomitant]
     Dosage: 20 MG, UNK
  4. PREMARIN [Concomitant]
     Dosage: 0.3 MG, UNK
  5. LISINOPRIL [Concomitant]
     Dosage: 10 MG, UNK
  6. DIGOXINE [Concomitant]
     Dosage: 0.25 MG, UNK
  7. VITAMIN C                          /00008001/ [Concomitant]
     Dosage: 250 MG, UNK
  8. WARFARIN [Concomitant]
     Dosage: 1 MG, UNK
  9. CALCIUM 500+D [Concomitant]
     Dosage: UNK
  10. ZETIA [Concomitant]
     Dosage: 10 MG, UNK
  11. IRON [Concomitant]
     Dosage: 325 MG, UNK

REACTIONS (1)
  - Psoriasis [Unknown]
